FAERS Safety Report 6626451-2 (Version None)
Quarter: 2010Q1

REPORT INFORMATION
  Report Type: 
  Country: None (occurrence: None)
  Receive Date: 20100310
  Receipt Date: 20100222
  Transmission Date: 20100710
  Serious: No
  Sender: FDA-Public Use
  Company Number: US-ABBOTT-10P-163-0628961-00

PATIENT
  Sex: Female
  Weight: 72.64 kg

DRUGS (6)
  1. LUPRON DEPOT [Suspect]
     Indication: ENDOMETRIOSIS
     Dates: start: 20100204
  2. LUPRON DEPOT [Suspect]
     Indication: POLYCYSTIC OVARIES
  3. LUPRON DEPOT [Suspect]
     Indication: PELVIC INFLAMMATORY DISEASE
  4. THYROLACTONE [Concomitant]
     Indication: MINERAL SUPPLEMENTATION
  5. K DUR [Concomitant]
     Indication: MINERAL SUPPLEMENTATION
  6. ADBACK THERAPY [Concomitant]
     Indication: DRUG USE FOR UNKNOWN INDICATION
     Dates: start: 20100204

REACTIONS (2)
  - MIGRAINE [None]
  - NAUSEA [None]
